FAERS Safety Report 7647404-1 (Version None)
Quarter: 2011Q3

REPORT INFORMATION
  Report Type: 
  Country: None (occurrence: None)
  Receive Date: 20110729
  Receipt Date: 20110729
  Transmission Date: 20111222
  Serious: No
  Sender: FDA-Public Use
  Company Number: None

PATIENT

DRUGS (1)
  1. DOUXO CHLORHEXIDINE SHAMPOO 0.1% PHYTOSPHINGOSINE SOGEVAL LABORATORIES [Suspect]
     Indication: PYODERMA
     Dosage: TOPICAL
     Route: 061
     Dates: start: 20110710

REACTIONS (1)
  - ASTHMA [None]
